FAERS Safety Report 4610331-8 (Version None)
Quarter: 2005Q1

REPORT INFORMATION
  Report Type: 
  Country: None (occurrence: None)
  Receive Date: 20050314
  Receipt Date: 20050222
  Transmission Date: 20050727
  Serious: Yes (Hospitalization)
  Sender: FDA-Public Use
  Company Number: 10394

PATIENT
  Age: 67 Year
  Sex: Female

DRUGS (4)
  1. LEUCOVORIN CALCIUM [Suspect]
     Indication: COLON CANCER
     Dosage: 6312 MG FORTNIGHTLY IV
     Route: 042
     Dates: start: 20041206
  2. FLUOROURACIL [Suspect]
     Indication: COLON CANCER
     Dosage: 34128 MG FORTNIGHTLY IV
     Route: 042
     Dates: start: 20041208
  3. IRINOTECAN HCL [Suspect]
     Indication: COLON CANCER
     Dosage: 1128 MG FORTNIGHTLY IV
     Route: 042
     Dates: start: 20041208
  4. OXALIPLATIN [Suspect]
     Indication: COLON CANCER
     Dosage: 806 MG FORTNIGHTLY IV
     Route: 042
     Dates: start: 20041013

REACTIONS (1)
  - CEREBRAL ISCHAEMIA [None]
